FAERS Safety Report 9580597 (Version 1)
Quarter: 2013Q3

REPORT INFORMATION
  Report Type: Spontaneous
  Country: US (occurrence: None)
  Receive Date: 20130916
  Receipt Date: 20130916
  Transmission Date: 20140515
  Serious: Yes (Other)
  Sender: FDA-Public Use
  Company Number: JPI-P-030382

PATIENT
  Age: 42 Year
  Sex: Female
  Weight: 96.16 kg

DRUGS (2)
  1. XYREM [Suspect]
     Indication: CATAPLEXY
     Route: 048
     Dates: start: 201206
  2. MODAFINIL [Concomitant]

REACTIONS (4)
  - Weight decreased [None]
  - Eye irritation [None]
  - Vision blurred [None]
  - Cataplexy [None]
